FAERS Safety Report 24541053 (Version 5)
Quarter: 2025Q1

REPORT INFORMATION
  Report Type: Spontaneous
  Country: US (occurrence: US)
  Receive Date: 20241023
  Receipt Date: 20250317
  Transmission Date: 20250409
  Serious: Yes (Other)
  Sender: PFIZER
  Company Number: US-PFIZER INC-PV202400136323

PATIENT
  Age: 32 Year
  Sex: Female
  Weight: 45.351 kg

DRUGS (3)
  1. PRISTIQ EXTENDED-RELEASE [Suspect]
     Active Substance: DESVENLAFAXINE SUCCINATE
     Indication: Obsessive-compulsive disorder
     Dosage: 75 MG, 1X/DAY
     Route: 048
     Dates: start: 2017, end: 2022
  2. PRISTIQ EXTENDED-RELEASE [Suspect]
     Active Substance: DESVENLAFAXINE SUCCINATE
     Dosage: 25 MG, 1X/DAY
     Route: 048
     Dates: start: 2022, end: 202405
  3. CORLANOR [Concomitant]
     Active Substance: IVABRADINE HYDROCHLORIDE
     Indication: Postural orthostatic tachycardia syndrome
     Dosage: 5MG/DAY IN 2.5 PILLS/2.5 TWICE A DAY

REACTIONS (14)
  - Drug withdrawal syndrome [Not Recovered/Not Resolved]
  - Suicidal ideation [Not Recovered/Not Resolved]
  - Drug ineffective [Not Recovered/Not Resolved]
  - Weight decreased [Not Recovered/Not Resolved]
  - Gastrointestinal pain [Recovering/Resolving]
  - Depression [Not Recovered/Not Resolved]
  - Akathisia [Not Recovered/Not Resolved]
  - Asthenia [Not Recovered/Not Resolved]
  - Injury [Not Recovered/Not Resolved]
  - Malnutrition [Recovering/Resolving]
  - Hypoaesthesia [Not Recovered/Not Resolved]
  - Emotional disorder [Unknown]
  - Mental disorder [Unknown]
  - Pain [Unknown]

NARRATIVE: CASE EVENT DATE: 20240501
